FAERS Safety Report 18666535 (Version 1)
Quarter: 2020Q4

REPORT INFORMATION
  Report Type: Spontaneous
  Country: US (occurrence: US)
  Receive Date: 20201227
  Receipt Date: 20201227
  Transmission Date: 20210114
  Serious: No
  Sender: FDA-Public Use
  Company Number: US-GLAXOSMITHKLINE-US2020AMR251505

PATIENT
  Age: 50 Year
  Sex: Female

DRUGS (1)
  1. ZEJULA [Suspect]
     Active Substance: NIRAPARIB
     Indication: OVARIAN CANCER
     Dosage: 200 MG, QD
     Dates: start: 20201203

REACTIONS (3)
  - Blood pressure increased [Unknown]
  - Insomnia [Unknown]
  - Heart rate increased [Unknown]

NARRATIVE: CASE EVENT DATE: 202012
